FAERS Safety Report 4866331-6 (Version None)
Quarter: 2005Q4

REPORT INFORMATION
  Report Type: 
  Country: None (occurrence: None)
  Receive Date: 20051221
  Receipt Date: 20051213
  Transmission Date: 20060501
  Serious: Yes (Hospitalization, Other)
  Sender: FDA-Public Use
  Company Number: 2005168253

PATIENT
  Age: 50 Year
  Sex: Female
  Weight: 61.2356 kg

DRUGS (8)
  1. LYRICA [Suspect]
     Indication: MIGRAINE
     Dosage: 50 MG (50 MG, 1 IN 1 D), ORAL
     Route: 048
     Dates: start: 20051123, end: 20051204
  2. DEPAKOTE [Concomitant]
  3. REMERON [Concomitant]
  4. WELLBUTRIN [Concomitant]
  5. TOPAMAX [Concomitant]
  6. CYMBALTA [Concomitant]
  7. MITREX (SUMATRIPTAN SUCCINATE) [Concomitant]
  8. PREMARIN [Concomitant]

REACTIONS (13)
  - ABDOMINAL DISTENSION [None]
  - ABDOMINAL RIGIDITY [None]
  - CARDIAC MURMUR [None]
  - CONTUSION [None]
  - HEPATIC CYST [None]
  - INFECTIOUS MONONUCLEOSIS [None]
  - OEDEMA [None]
  - OEDEMA PERIPHERAL [None]
  - PAIN [None]
  - PAIN IN EXTREMITY [None]
  - PITTING OEDEMA [None]
  - PULMONARY OEDEMA [None]
  - WEIGHT INCREASED [None]
